FAERS Safety Report 10248794 (Version 1)
Quarter: 2014Q2

REPORT INFORMATION
  Report Type: Spontaneous
  Country: FR (occurrence: None)
  Receive Date: 20140618
  Receipt Date: 20140618
  Transmission Date: 20141212
  Serious: No
  Sender: FDA-Public Use
  Company Number: B0995472A

PATIENT
  Sex: Male
  Weight: 99.79 kg

DRUGS (13)
  1. PAROXETINE HYDROCHLORIDE [Suspect]
     Indication: STRESS
     Dosage: 20 MG PER DAY ORAL
     Route: 048
     Dates: end: 2014
  2. MIRTAZAPINE [Suspect]
     Indication: STRESS
     Dosage: 15 MG IN THE MORNING/ORAL
     Route: 048
     Dates: start: 20140521
  3. ENZALUTAMIDE [Concomitant]
  4. ZOLPIDEM TARTRATE [Concomitant]
  5. VALPROMIDE [Concomitant]
  6. ALPRAZOLAM [Concomitant]
  7. ZOLMITRIPTAN [Concomitant]
  8. OXYCODONE HYDROCHLORIDE [Concomitant]
  9. OXYCODONE HYDROCHLORIDE [Concomitant]
  10. BRINZOLAMIDE [Concomitant]
  11. THIOCOLCHICOSIDE [Concomitant]
  12. ENANTONE [Concomitant]
  13. OMEPRAZOLE [Concomitant]

REACTIONS (1)
  - Thrombocytopenia [None]
